FAERS Safety Report 4527856-6 (Version None)
Quarter: 2004Q4

REPORT INFORMATION
  Report Type: 
  Country: None (occurrence: None)
  Receive Date: 20041202
  Receipt Date: 20040921
  Transmission Date: 20050328
  Serious: No
  Sender: FDA-Public Use
  Company Number: 200420590BWH

PATIENT
  Age: 77 Year
  Sex: Male

DRUGS (6)
  1. LEVITRA [Suspect]
     Indication: ERECTILE DYSFUNCTION
     Dosage: 10 MG, PRN, ORAL
     Route: 048
  2. CARDURA [Concomitant]
  3. NEXIUM [Concomitant]
  4. GLUCOPHAGE [Concomitant]
  5. LIPITOR [Concomitant]
  6. FLONASE [Concomitant]

REACTIONS (1)
  - ERECTILE DYSFUNCTION [None]
